FAERS Safety Report 7867481-2 (Version None)
Quarter: 2011Q4

REPORT INFORMATION
  Report Type: 
  Country: None (occurrence: None)
  Receive Date: 20111028
  Receipt Date: 20111024
  Transmission Date: 20120403
  Serious: Yes (Other)
  Sender: FDA-Public Use
  Company Number: JP-CEPHALON-2011004234

PATIENT
  Sex: Male
  Weight: 67 kg

DRUGS (8)
  1. BENDAMUSTINE HCL [Suspect]
     Indication: B-CELL LYMPHOMA
     Route: 042
     Dates: start: 20101220, end: 20101221
  2. BENDAMUSTINE HCL [Suspect]
     Route: 042
     Dates: start: 20110224, end: 20110225
  3. BENDAMUSTINE HCL [Suspect]
     Route: 042
     Dates: start: 20110629
  4. MAGNESIUM OXIDE [Concomitant]
  5. BENDAMUSTINE HCL [Suspect]
     Route: 042
     Dates: start: 20110407, end: 20110520
  6. SULFAMETHOXAZOLE AND TRIMETHOPRIM [Concomitant]
  7. OMEPRAZOLE [Concomitant]
  8. VALACYCLOVIR HYDROCHLORIDE [Concomitant]

REACTIONS (2)
  - BONE MARROW FAILURE [None]
  - NEUTROPHIL COUNT DECREASED [None]
